FAERS Safety Report 8834442 (Version 2)
Quarter: 2013Q3

REPORT INFORMATION
  Report Type: Spontaneous
  Country: US (occurrence: US)
  Receive Date: 20121010
  Receipt Date: 20130819
  Transmission Date: 20140515
  Serious: Yes (Hospitalization, Disabling, Other)
  Sender: FDA-Public Use
  Company Number: US-009507513-1202USA02287

PATIENT
  Sex: Female

DRUGS (12)
  1. FOSAMAX [Suspect]
     Dosage: UNK
     Route: 048
     Dates: start: 2000, end: 200910
  2. FOSAMAX [Suspect]
     Dosage: 70 MG, UNK
     Route: 048
  3. VITAMINS (UNSPECIFIED) [Concomitant]
     Dosage: 1 DF, QD
     Dates: start: 1988
  4. ASCORBIC ACID [Concomitant]
     Dosage: UNK
     Dates: start: 1988
  5. CALCIUM (UNSPECIFIED) (+) VITAMIN D (UNSPECIFIED) [Concomitant]
     Dosage: 2 DF, QD
     Dates: start: 1988
  6. VERAPAMIL [Concomitant]
     Dosage: 240 MG, UNK
     Dates: start: 1976
  7. PREMARIN [Concomitant]
     Dosage: 0.625 MG, UNK
     Dates: start: 1976
  8. LORAZEPAM [Concomitant]
     Dosage: 1 MG, UNK
     Dates: start: 1988
  9. ALBUTEROL [Concomitant]
     Dosage: 17 G, UNK
     Dates: start: 1996
  10. FLOVENT [Concomitant]
     Dosage: 220 MICROGRAM, UNK
     Dates: start: 1996
  11. SINGULAIR [Concomitant]
     Dosage: 10 MG, UNK
     Dates: start: 1990
  12. FLONASE [Concomitant]
     Dosage: 50 MICROGRAM, UNK
     Dates: start: 1996

REACTIONS (3)
  - Adverse drug reaction [Unknown]
  - Cellulitis [Unknown]
  - Osteonecrosis of jaw [Not Recovered/Not Resolved]
